FAERS Safety Report 7817097-9 (Version None)
Quarter: 2011Q4

REPORT INFORMATION
  Report Type: 
  Country: None (occurrence: None)
  Receive Date: 20111017
  Receipt Date: 20111007
  Transmission Date: 20120403
  Serious: Yes (Hospitalization, Other)
  Sender: FDA-Public Use
  Company Number: FR-KINGPHARMUSA00001-K201101189

PATIENT
  Age: 63 Year
  Sex: Male

DRUGS (5)
  1. SPIRIVA [Concomitant]
     Dosage: UNK
     Dates: start: 20080101
  2. DUPHALAC [Concomitant]
  3. ALTACE [Suspect]
     Indication: HYPERTENSION
     Dosage: 2.5 MG, QD
     Route: 048
     Dates: start: 20110301, end: 20110915
  4. FLUTICASONE PROPIONATE [Concomitant]
     Dosage: UNK
     Dates: start: 20080101
  5. METEOSPASMYL [Concomitant]

REACTIONS (7)
  - RENAL CYST [None]
  - INFLAMMATION [None]
  - PANCREATITIS NECROTISING [None]
  - LEUKOCYTOSIS [None]
  - PANCREATITIS ACUTE [None]
  - ABDOMINAL PAIN [None]
  - SIGMOIDITIS [None]
